FAERS Safety Report 9933130 (Version 1)
Quarter: 2014Q1

REPORT INFORMATION
  Report Type: Spontaneous
  Country: US (occurrence: US)
  Receive Date: 20140228
  Receipt Date: 20140228
  Transmission Date: 20141002
  Serious: No
  Sender: FDA-Public Use
  Company Number: US-GLAXOSMITHKLINE-A1050253A

PATIENT
  Age: 53 Year
  Sex: Female

DRUGS (3)
  1. LAMICTAL [Suspect]
     Indication: BIPOLAR DISORDER
     Dosage: 50MG TWICE PER DAY
     Route: 048
     Dates: start: 2009, end: 20131115
  2. SEROQUEL [Concomitant]
  3. WELLBUTRIN [Concomitant]

REACTIONS (10)
  - Wrong technique in drug usage process [Recovering/Resolving]
  - Nervousness [Unknown]
  - Malaise [Unknown]
  - Vomiting [Unknown]
  - Headache [Unknown]
  - Nausea [Unknown]
  - Asthenia [Unknown]
  - Feeling abnormal [Unknown]
  - Anxiety [Unknown]
  - Nasopharyngitis [Unknown]
